FAERS Safety Report 15832304 (Version 1)
Quarter: 2019Q1

REPORT INFORMATION
  Report Type: Report from Study
  Country: US (occurrence: US)
  Receive Date: 20190116
  Receipt Date: 20190116
  Transmission Date: 20190417
  Serious: No
  Sender: FDA-Public Use
  Company Number: PHEH2019US001699

PATIENT
  Sex: Male

DRUGS (2)
  1. ABX [Concomitant]
     Indication: ORAL SURGERY
     Route: 065
  2. ILARIS [Suspect]
     Active Substance: CANAKINUMAB
     Indication: PYREXIA
     Dosage: 150 MG, EVERY 4 WEEKS
     Route: 058

REACTIONS (1)
  - No adverse event [Unknown]
